FAERS Safety Report 5480323-8 (Version None)
Quarter: 2007Q3

REPORT INFORMATION
  Report Type: 
  Country: None (occurrence: None)
  Receive Date: 20070914
  Receipt Date: 20060808
  Transmission Date: 20080115
  Serious: Yes (Hospitalization)
  Sender: FDA-Public Use
  Company Number: 06P-163-0340068-00

PATIENT
  Age: 59 Year
  Sex: Male

DRUGS (11)
  1. SYNTHROID [Suspect]
     Indication: HYPOTHYROIDISM
     Dosage: 88 MCG, 1 IN 1 D, PER ORAL
     Route: 048
     Dates: start: 19980101
  2. LITHIUM CARBONATE [Suspect]
     Indication: BIPOLAR DISORDER
     Dosage: 300 MG, 3 IN 1 D, PER ORAL
     Route: 048
     Dates: start: 19930101
  3. B-KOMPLEX [Concomitant]
  4. LOSARTAN POTASSIUM [Concomitant]
  5. ATORVASTATIN CALCIUM [Concomitant]
  6. METOPROLOL SUCCINATE [Concomitant]
  7. FOLIC ACID [Concomitant]
  8. AMLODIPINE BESYLATE [Concomitant]
  9. L-CARNITINE [Concomitant]
  10. TRAVATAN [Concomitant]
  11. ERGOCALCIFEROL [Concomitant]

REACTIONS (2)
  - BLOOD CREATINE INCREASED [None]
  - DRUG TOXICITY [None]
